FAERS Safety Report 23473482 (Version 1)
Quarter: 2024Q1

REPORT INFORMATION
  Report Type: Spontaneous
  Country: US (occurrence: US)
  Receive Date: 20240203
  Receipt Date: 20240203
  Transmission Date: 20240410
  Serious: No
  Sender: FDA-Public Use
  Company Number: US-AMGEN-USASP2024021626

PATIENT

DRUGS (2)
  1. LUMAKRAS [Suspect]
     Active Substance: SOTORASIB
     Indication: Product used for unknown indication
     Dosage: 960 MILLIGRAM, (TAKING 320 MILLIGRAM TABLETS, 3 OF THEM THROUGHOUT THE DAY INSTEAD OF ALL OF THEM AT
     Route: 065
  2. LUMAKRAS [Suspect]
     Active Substance: SOTORASIB
     Dosage: 960 MILLIGRAM, (3 TABLET OF 320 MILLIGRAM), QD, CHANGED IT BACK TO THE CORRECT DOSING
     Route: 065

REACTIONS (1)
  - Adverse event [Unknown]
